FAERS Safety Report 17311214 (Version 1)
Quarter: 2020Q1

REPORT INFORMATION
  Report Type: Spontaneous
  Country: US (occurrence: US)
  Receive Date: 20200123
  Receipt Date: 20200123
  Transmission Date: 20200409
  Serious: No
  Sender: FDA-Public Use
  Company Number: US-ROCHE-2235936

PATIENT
  Age: 67 Year
  Sex: Female

DRUGS (2)
  1. RITUXAN [Suspect]
     Active Substance: RITUXIMAB
     Indication: SYSTEMIC SCLERODERMA
     Route: 042
     Dates: start: 201812
  2. RITUXAN [Suspect]
     Active Substance: RITUXIMAB
     Dosage: FOR 4 WEEKS PER STUDY, REEVALUATE IN 6 MONTHS
     Route: 042
     Dates: start: 201812

REACTIONS (3)
  - No adverse event [Unknown]
  - Off label use [Unknown]
  - Intentional product use issue [Unknown]

NARRATIVE: CASE EVENT DATE: 20181220
